FAERS Safety Report 11116679 (Version 1)
Quarter: 2015Q2

REPORT INFORMATION
  Report Type: Report from Study
  Country: US (occurrence: US)
  Receive Date: 20150515
  Receipt Date: 20150515
  Transmission Date: 20150821
  Serious: Yes (Other)
  Sender: FDA-Public Use
  Company Number: US-PFIZER INC-2013245411

PATIENT
  Age: 13 Year
  Sex: Male

DRUGS (3)
  1. DIPHENHYDRAMINE [Concomitant]
     Active Substance: DIPHENHYDRAMINE
     Indication: PREMEDICATION
     Dosage: 0.5-1 MG/KG TO A MAXIMUM DOSE OF 50 MG
  2. TEMSIROLIMUS [Suspect]
     Active Substance: TEMSIROLIMUS
     Indication: EPENDYMOMA
     Dosage: 60 MG/M2, CYCLIC
     Route: 042
  3. VALPROIC ACID. [Interacting]
     Active Substance: VALPROIC ACID
     Dosage: 15 MG/KG, 3X/DAY (3-7 DAYS BEFORE STARTING TEMSIROLIMUS)
     Route: 048

REACTIONS (3)
  - Drug interaction [Unknown]
  - Mucosal inflammation [Unknown]
  - Anaphylactoid reaction [Unknown]
